FAERS Safety Report 6725435-3 (Version None)
Quarter: 2010Q2

REPORT INFORMATION
  Report Type: 
  Country: None (occurrence: None)
  Receive Date: 20100514
  Receipt Date: 20100511
  Transmission Date: 20101027
  Serious: No
  Sender: FDA-Public Use
  Company Number: JP-SANOFI-AVENTIS-2010SA019759

PATIENT
  Age: 81 Year
  Sex: Male

DRUGS (6)
  1. PLAVIX [Suspect]
     Indication: DRUG USE FOR UNKNOWN INDICATION
     Route: 048
     Dates: end: 20100324
  2. DOXAZOSIN MESYLATE [Suspect]
     Indication: HYPERTENSION
     Route: 048
     Dates: end: 20100324
  3. ADALAT CC [Suspect]
     Indication: HYPERTENSION
     Route: 048
     Dates: end: 20100324
  4. DORNER [Suspect]
     Route: 048
     Dates: end: 20100324
  5. MYSLEE [Concomitant]
  6. CALCIUM [Concomitant]

REACTIONS (4)
  - CELLULITIS [None]
  - DRUG ERUPTION [None]
  - PRURITUS [None]
  - PYREXIA [None]
